FAERS Safety Report 8182862-8 (Version None)
Quarter: 2012Q1

REPORT INFORMATION
  Report Type: 
  Country: None (occurrence: None)
  Receive Date: 20120126
  Receipt Date: 20111201
  Transmission Date: 20120608
  Serious: Yes (Other)
  Sender: FDA-Public Use
  Company Number: PHEH2011US07072

PATIENT
  Age: 13 Month
  Sex: Male
  Weight: 10 kg

DRUGS (4)
  1. VIMPAT [Concomitant]
  2. TAURINE (TAURINE) [Concomitant]
  3. SABRIL [Concomitant]
  4. AFINITOR [Suspect]
     Indication: ASTROCYTOMA
     Dosage: 2.5 MG, DAILY, ORAL
     Route: 048
     Dates: start: 20110917, end: 20111121

REACTIONS (3)
  - LUNG DISORDER [None]
  - PNEUMONIA [None]
  - CROUP INFECTIOUS [None]
